FAERS Safety Report 8698460 (Version 2)
Quarter: 2012Q4

REPORT INFORMATION
  Report Type: 
  Country: AU (occurrence: AU)
  Receive Date: 20120802
  Receipt Date: 20121026
  Transmission Date: 20130627
  Serious: Yes (Other)
  Sender: FDA-Public Use
  Company Number: AU-ABBOTT-12P-008-0961627-00

PATIENT
  Age: 16 Year
  Sex: Female

DRUGS (5)
  1. KLACID [Suspect]
     Indication: URINARY TRACT DISORDER
     Dates: start: 20110622
  2. VERAPAMIL [Interacting]
     Indication: MIGRAINE
     Dosage: 240 mg daily
  3. AMOXYCILLIN-POTASSIUM CLAVULANATE [Concomitant]
     Indication: PRODUCT USED FOR UNKNOWN INDICATION
  4. PANADOL [Concomitant]
     Indication: PRODUCT USED FOR UNKNOWN INDICATION
  5. SODIUM VALPROATE [Concomitant]
     Indication: PRODUCT USED FOR UNKNOWN INDICATION

REACTIONS (2)
  - Hypotension [Recovered/Resolved]
  - Drug interaction [Recovered/Resolved]
